FAERS Safety Report 24684874 (Version 1)
Quarter: 2024Q4

REPORT INFORMATION
  Report Type: Spontaneous
  Country: US (occurrence: US)
  Receive Date: 20241202
  Receipt Date: 20241202
  Transmission Date: 20250114
  Serious: Yes (Hospitalization, Other)
  Sender: AUROBINDO
  Company Number: US-AUROBINDO-AUR-APL-2024-057855

PATIENT
  Age: 67 Year
  Sex: Female

DRUGS (2)
  1. BUPIVACAINE HYDROCHLORIDE [Suspect]
     Active Substance: BUPIVACAINE HYDROCHLORIDE
     Indication: Pain
     Dosage: UNK (INCREASED FROM 7.2 MG TO 10 MG PER 24 H)
     Route: 065
  2. MORPHINE [Suspect]
     Active Substance: MORPHINE
     Indication: Pain
     Dosage: 10 MILLIGRAM, DAILY
     Route: 065

REACTIONS (3)
  - Paralysis [Recovering/Resolving]
  - Areflexia [Recovering/Resolving]
  - Hypoaesthesia [Recovered/Resolved]
